FAERS Safety Report 4884654-1 (Version None)
Quarter: 2006Q1

REPORT INFORMATION
  Report Type: 
  Country: None (occurrence: None)
  Receive Date: 20060119
  Receipt Date: 20051128
  Transmission Date: 20060701
  Serious: Yes (Other)
  Sender: FDA-Public Use
  Company Number: FR-RB-2389-2005

PATIENT
  Age: 40 Year
  Sex: Male
  Weight: 70 kg

DRUGS (4)
  1. BUPRENORPHINE HCL [Suspect]
     Indication: ELECTROLYTE SUBSTITUTION THERAPY
     Route: 060
     Dates: end: 20050101
  2. BUPRENORPHINE HCL [Suspect]
     Route: 060
     Dates: start: 20050101
  3. RIFAMPICIN [Suspect]
     Indication: DRUG USE FOR UNKNOWN INDICATION
     Route: 042
     Dates: start: 20051114
  4. OFLOXACIN [Concomitant]
     Indication: DRUG USE FOR UNKNOWN INDICATION
     Route: 048
     Dates: start: 20051117

REACTIONS (2)
  - DRUG INTERACTION [None]
  - DRUG WITHDRAWAL SYNDROME [None]
